FAERS Safety Report 22170259 (Version 1)
Quarter: 2023Q2

REPORT INFORMATION
  Report Type: Spontaneous
  Country: EU (occurrence: EU)
  Receive Date: 20230404
  Receipt Date: 20230404
  Transmission Date: 20230722
  Serious: Yes (Hospitalization)
  Sender: FDA-Public Use
  Company Number: None

PATIENT
  Age: 60 Year
  Sex: Male
  Weight: 85 kg

DRUGS (3)
  1. THIOTEPA [Suspect]
     Active Substance: THIOTEPA
     Indication: Autologous haematopoietic stem cell transplant
     Dosage: 250,00 MG/M2 (490MG FROM D-7 TO -5)
     Route: 042
     Dates: start: 20211227, end: 20211229
  2. BUSULFAN [Suspect]
     Active Substance: BUSULFAN
     Indication: Autologous haematopoietic stem cell transplant
     Dosage: 3,20 MG/KG (265MG D-4,-3); 1.60 MG/KG (133MG ON D-2) (133MG/G)
     Route: 042
     Dates: start: 20220101, end: 20220101
  3. BUSULFAN [Suspect]
     Active Substance: BUSULFAN
     Indication: Autologous haematopoietic stem cell transplant
     Dosage: 3,20 MG/KG (265MG D-4,-3); 1.60 MG/KG (133MG ON D-2)
     Route: 042
     Dates: start: 20211230, end: 20211231

REACTIONS (1)
  - Pulmonary alveolar haemorrhage [Recovered/Resolved]

NARRATIVE: CASE EVENT DATE: 20220513
